FAERS Safety Report 4914935-4 (Version None)
Quarter: 2006Q1

REPORT INFORMATION
  Report Type: 
  Country: None (occurrence: None)
  Receive Date: 20060215
  Receipt Date: 20060215
  Transmission Date: 20060701
  Serious: Yes (Hospitalization)
  Sender: FDA-Public Use
  Company Number: None

PATIENT
  Sex: Female
  Weight: 19.5047 kg

DRUGS (1)
  1. MOTRIN [Suspect]
     Indication: PAIN
     Dosage: PO
     Route: 048
     Dates: start: 20051218

REACTIONS (4)
  - ERYTHEMA [None]
  - EYE SWELLING [None]
  - SWELLING FACE [None]
  - URTICARIA [None]
